FAERS Safety Report 8907458 (Version 1)
Quarter: 2012Q4

REPORT INFORMATION
  Report Type: Report from Study
  Country: US (occurrence: US)
  Receive Date: 20121114
  Receipt Date: 20121114
  Transmission Date: 20130627
  Serious: Yes (Other)
  Sender: FDA-Public Use
  Company Number: US-ABBOTT-12P-163-1005563-00

PATIENT
  Sex: Female
  Weight: 96.7 kg

DRUGS (13)
  1. LUPRON DEPOT [Suspect]
     Indication: ENDOMETRIOSIS
     Dates: start: 201208
  2. SEROQUEL [Concomitant]
     Indication: BIPOLAR DISORDER
  3. DIPHENOXYLATE/ATROPINE [Concomitant]
     Indication: DIARRHOEA
  4. OMEPRAZOLE [Concomitant]
     Indication: GASTROOESOPHAGEAL REFLUX DISEASE
  5. IMURAN [Concomitant]
     Indication: CROHN^S DISEASE
  6. BUPROPION [Concomitant]
     Indication: DEPRESSION
  7. ASACOL [Concomitant]
     Indication: CROHN^S DISEASE
  8. NIFEDIPINE ER [Concomitant]
     Indication: HYPERTENSION
  9. LISINOPRIL [Concomitant]
     Indication: HYPERTENSION
  10. CARVEDILOL [Concomitant]
     Indication: HEART RATE INCREASED
  11. CLONAZEPAM [Concomitant]
     Indication: PANIC DISORDER
  12. NORETHINDRONE ACETATE [Concomitant]
     Indication: PRODUCT USED FOR UNKNOWN INDICATION
  13. FLUOXETINE [Concomitant]
     Indication: DEPRESSION

REACTIONS (4)
  - Pelvic adhesions [Not Recovered/Not Resolved]
  - Ovarian cyst [Not Recovered/Not Resolved]
  - Urinary bladder polyp [Not Recovered/Not Resolved]
  - Pelvic pain [Not Recovered/Not Resolved]
